FAERS Safety Report 8170005-6 (Version None)
Quarter: 2012Q1

REPORT INFORMATION
  Report Type: 
  Country: None (occurrence: None)
  Receive Date: 20120105
  Receipt Date: 20110316
  Transmission Date: 20120608
  Serious: Yes (Other)
  Sender: FDA-Public Use
  Company Number: US-005993

PATIENT
  Age: 44 Year
  Sex: Female

DRUGS (5)
  1. PROHANCE [Suspect]
     Indication: ADRENAL INSUFFICIENCY
     Dosage: 10ML ONCE INTRAVENOUS (NOT OTHERWISE SPECIFIED)
     Route: 042
     Dates: start: 20110315, end: 20110315
  2. PROHANCE [Suspect]
     Indication: NUCLEAR MAGNETIC RESONANCE IMAGING
     Dosage: 10ML ONCE INTRAVENOUS (NOT OTHERWISE SPECIFIED)
     Route: 042
     Dates: start: 20110315, end: 20110315
  3. PROHANCE [Suspect]
     Indication: FATIGUE
     Dosage: 10ML ONCE INTRAVENOUS (NOT OTHERWISE SPECIFIED)
     Route: 042
     Dates: start: 20110315, end: 20110315
  4. PROHANCE [Suspect]
     Indication: HEADACHE
     Dosage: 10ML ONCE INTRAVENOUS (NOT OTHERWISE SPECIFIED)
     Route: 042
     Dates: start: 20110315, end: 20110315
  5. MULTI-VITAMIN [Concomitant]

REACTIONS (1)
  - HYPERSENSITIVITY [None]
